FAERS Safety Report 16706664 (Version 1)
Quarter: 2019Q3

REPORT INFORMATION
  Report Type: Spontaneous
  Country: US (occurrence: US)
  Receive Date: 20190815
  Receipt Date: 20190815
  Transmission Date: 20191004
  Serious: No
  Sender: FDA-Public Use
  Company Number: US-PACIRA-201800133

PATIENT

DRUGS (3)
  1. BUPIVACAINE. [Suspect]
     Active Substance: BUPIVACAINE
     Indication: NERVE BLOCK
     Dosage: 133MG EXPAREL ADMIXTURE WITH BUPIVACAINE HCL 0.25%
  2. EXPAREL [Suspect]
     Active Substance: BUPIVACAINE
     Indication: NERVE BLOCK
     Dosage: 133MG ADMIXTURE WITH BUPIVACAINE HCL 0.25%
  3. ROPIVACAINE. [Suspect]
     Active Substance: ROPIVACAINE HYDROCHLORIDE
     Indication: SURGERY
     Dosage: ROPIVACAINE COCKTAIL

REACTIONS (1)
  - Labelled drug-drug interaction medication error [Unknown]
